FAERS Safety Report 9002724 (Version 1)
Quarter: 2012Q4

REPORT INFORMATION
  Report Type: Spontaneous
  Country: FR (occurrence: None)
  Receive Date: 20121226
  Receipt Date: 20121226
  Transmission Date: 20130627
  Serious: Yes (Life-Threatening)
  Sender: FDA-Public Use
  Company Number: FK201204062

PATIENT
  Age: 49 Year
  Sex: Female

DRUGS (3)
  1. PROPOFOL [Suspect]
     Indication: ANAESTHESIA
     Route: 040
     Dates: start: 20121004, end: 20121004
  2. CELOCURINE [Suspect]
  3. SUFENTANIL [Suspect]

REACTIONS (4)
  - Chills [None]
  - Tachycardia [None]
  - Bronchospasm [None]
  - Hypotension [None]
